FAERS Safety Report 5258083-5 (Version None)
Quarter: 2007Q1

REPORT INFORMATION
  Report Type: 
  Country: None (occurrence: None)
  Receive Date: 20070307
  Receipt Date: 20070223
  Transmission Date: 20070707
  Serious: Yes (Hospitalization)
  Sender: FDA-Public Use
  Company Number: US-SHR-US-2006-038524

PATIENT
  Age: 49 Year
  Sex: Male
  Weight: 65.76 kg

DRUGS (5)
  1. BETASERON [Suspect]
     Indication: SECONDARY PROGRESSIVE MULTIPLE SCLEROSIS
     Dosage: 8 MIU, EVERY 2D
     Route: 058
     Dates: start: 19990827
  2. AMITRIPTYLINE HCL [Concomitant]
     Dosage: 75 MG, UNK
     Route: 048
  3. LORAZEPAM [Concomitant]
     Dosage: 1.5 MG, UNK
     Route: 048
  4. LISINOPRIL [Concomitant]
     Dosage: 10 MG, UNK
     Route: 048
  5. DETROL [Concomitant]
     Dosage: 4 MG, UNK
     Route: 048

REACTIONS (1)
  - MYOCARDIAL INFARCTION [None]
